FAERS Safety Report 8888937 (Version 1)
Quarter: 2012Q4

REPORT INFORMATION
  Report Type: 
  Country: US (occurrence: US)
  Receive Date: 20121106
  Receipt Date: 20121106
  Transmission Date: 20130627
  Serious: Yes (Life-Threatening, Hospitalization)
  Sender: FDA-Public Use
  Company Number: US-COVIDIEN/TYCO HEALTHCARE/MALLINCKRODT-T201203760

PATIENT
  Age: 2 Year
  Sex: Male

DRUGS (1)
  1. ROXICODONE [Suspect]
     Dosage: 30 mg, unknown amount
     Dates: start: 20120910

REACTIONS (18)
  - Accidental exposure to product by child [Recovering/Resolving]
  - Metabolic alkalosis [Recovering/Resolving]
  - Respiratory acidosis [Recovering/Resolving]
  - Unresponsive to stimuli [Recovering/Resolving]
  - Respiratory depression [Recovering/Resolving]
  - Depressed level of consciousness [Recovering/Resolving]
  - Hyperglycaemia [Recovered/Resolved]
  - Oxygen saturation decreased [Recovering/Resolving]
  - Electrocardiogram QT prolonged [Recovering/Resolving]
  - Hypoglycaemia [Recovered/Resolved]
  - Pyrexia [Recovering/Resolving]
  - Rhonchi [Recovering/Resolving]
  - Lung infiltration [Recovering/Resolving]
  - Pneumonia aspiration [Recovering/Resolving]
  - Miosis [Recovering/Resolving]
  - Mental status changes [Recovering/Resolving]
  - CSF pressure increased [Recovering/Resolving]
  - Somnolence [Recovering/Resolving]
